FAERS Safety Report 8474400-7 (Version None)
Quarter: 2012Q2

REPORT INFORMATION
  Report Type: 
  Country: None (occurrence: None)
  Receive Date: 20120621
  Receipt Date: 20120606
  Transmission Date: 20120825
  Serious: Yes (Disabling, Other)
  Sender: FDA-Public Use
  Company Number: 2012MA007042

PATIENT
  Sex: Female

DRUGS (1)
  1. METOCLOPRAMIDE [Suspect]
     Indication: PRODUCT USED FOR UNKNOWN INDICATION
     Dates: start: 20060201, end: 20100301

REACTIONS (12)
  - MENTAL DISORDER [None]
  - EMOTIONAL DISTRESS [None]
  - TARDIVE DYSKINESIA [None]
  - MOVEMENT DISORDER [None]
  - EXTRAPYRAMIDAL DISORDER [None]
  - ACTIVITIES OF DAILY LIVING IMPAIRED [None]
  - ANHEDONIA [None]
  - PAIN [None]
  - QUALITY OF LIFE DECREASED [None]
  - INCORRECT DRUG ADMINISTRATION DURATION [None]
  - FAMILY STRESS [None]
  - MULTIPLE INJURIES [None]
